FAERS Safety Report 5698497-2 (Version None)
Quarter: 2008Q2

REPORT INFORMATION
  Report Type: 
  Country: None (occurrence: None)
  Receive Date: 20080408
  Receipt Date: 20060626
  Transmission Date: 20081010
  Serious: No
  Sender: FDA-Public Use
  Company Number: US-BAYER-US-2006-017024

PATIENT
  Age: 80 Year
  Sex: Female
  Weight: 58 kg

DRUGS (9)
  1. MENOSTAR [Suspect]
     Indication: OSTEOPOROSIS
     Route: 062
     Dates: start: 20060501, end: 20060601
  2. NITRGLYCERIN TRANSDERMAL SYSTEM [Concomitant]
  3. ZOCOR [Concomitant]
  4. ATENOLOL [Concomitant]
  5. QUINAPRIL HCL [Concomitant]
  6. LEVOTHROID [Concomitant]
  7. COQ10 [Concomitant]
  8. VITAMINS [Concomitant]
  9. FOLBIC [Concomitant]

REACTIONS (1)
  - PELVIC PAIN [None]
